FAERS Safety Report 14868290 (Version 1)
Quarter: 2018Q2

REPORT INFORMATION
  Report Type: Report from Study
  Country: GB (occurrence: GB)
  Receive Date: 20180509
  Receipt Date: 20180509
  Transmission Date: 20180711
  Serious: Yes (Other)
  Sender: FDA-Public Use
  Company Number: GB-TEVA-2018-GB-889332

PATIENT
  Sex: Female

DRUGS (1)
  1. COPAXONE [Suspect]
     Active Substance: GLATIRAMER ACETATE
     Route: 058
     Dates: start: 20170714

REACTIONS (5)
  - Injection site reaction [Unknown]
  - Palpitations [Unknown]
  - Chest discomfort [Unknown]
  - Flushing [Unknown]
  - Dyspnoea [Unknown]
